FAERS Safety Report 5495391-7 (Version None)
Quarter: 2007Q4

REPORT INFORMATION
  Report Type: 
  Country: None (occurrence: None)
  Receive Date: 20071024
  Receipt Date: 20071017
  Transmission Date: 20080405
  Serious: Yes (Other)
  Sender: FDA-Public Use
  Company Number: GB-PFIZER INC-2007087882

PATIENT

DRUGS (1)
  1. SILDENAFIL (PAH) [Suspect]
     Indication: LUNG DISORDER

REACTIONS (1)
  - INTESTINAL OBSTRUCTION [None]
